FAERS Safety Report 15724036 (Version 3)
Quarter: 2019Q1

REPORT INFORMATION
  Report Type: Report from Study
  Country: US (occurrence: US)
  Receive Date: 20181214
  Receipt Date: 20190207
  Transmission Date: 20190417
  Serious: No
  Sender: FDA-Public Use
  Company Number: PHEH2018US052203

PATIENT
  Sex: Female

DRUGS (1)
  1. COSENTYX [Suspect]
     Active Substance: SECUKINUMAB
     Indication: PSORIASIS
     Route: 058

REACTIONS (5)
  - Psoriasis [Unknown]
  - Burning sensation [Unknown]
  - Drug ineffective [Unknown]
  - Malaise [Unknown]
  - Pruritus [Unknown]
